FAERS Safety Report 5825962-7 (Version None)
Quarter: 2008Q3

REPORT INFORMATION
  Report Type: 
  Country: None (occurrence: None)
  Receive Date: 20080729
  Receipt Date: 20080725
  Transmission Date: 20090109
  Serious: Yes (Death, Hospitalization)
  Sender: FDA-Public Use
  Company Number: PHEH2008US06696

PATIENT
  Sex: Male

DRUGS (2)
  1. NEORAL [Suspect]
     Indication: RENAL TRANSPLANT
     Dosage: 100 MG, BID
     Route: 048
     Dates: start: 20021210
  2. CELLCEPT [Concomitant]

REACTIONS (3)
  - BONE NEOPLASM MALIGNANT [None]
  - OESOPHAGEAL CARCINOMA [None]
  - OESOPHAGEAL OPERATION [None]
